FAERS Safety Report 4926182-0 (Version None)
Quarter: 2006Q1

REPORT INFORMATION
  Report Type: 
  Country: None (occurrence: None)
  Receive Date: 20060224
  Receipt Date: 20060224
  Transmission Date: 20060701
  Serious: Yes (Other)
  Sender: FDA-Public Use
  Company Number: None

PATIENT
  Sex: Female
  Weight: 76.6579 kg

DRUGS (1)
  1. OXYCONTIN [Suspect]
     Indication: BACK DISORDER
     Dosage: 80MG QD
     Dates: start: 20051201

REACTIONS (3)
  - DIARRHOEA [None]
  - GASTROINTESTINAL DISORDER [None]
  - STOMACH DISCOMFORT [None]
